FAERS Safety Report 4955899-7 (Version None)
Quarter: 2006Q1

REPORT INFORMATION
  Report Type: 
  Country: None (occurrence: None)
  Receive Date: 20060327
  Receipt Date: 20060327
  Transmission Date: 20060701
  Serious: Yes (Hospitalization, Other)
  Sender: FDA-Public Use
  Company Number: None

PATIENT
  Sex: Female
  Weight: 56.2 kg

DRUGS (2)
  1. CYTARABINE [Suspect]
     Indication: ACUTE MYELOID LEUKAEMIA
     Dosage: 24.48 G
     Dates: start: 20060112
  2. ETOPOSIDE [Suspect]
     Dosage: 2088 MG
     Dates: start: 20060112

REACTIONS (10)
  - CATHETER RELATED INFECTION [None]
  - CHEST X-RAY ABNORMAL [None]
  - CYANOSIS [None]
  - ENTEROCOCCAL BACTERAEMIA [None]
  - LUNG DISORDER [None]
  - NEUTROPENIA [None]
  - OXYGEN SATURATION DECREASED [None]
  - PLEURAL EFFUSION [None]
  - RESPIRATORY FAILURE [None]
  - STAPHYLOCOCCAL BACTERAEMIA [None]
